FAERS Safety Report 8541595-6 (Version None)
Quarter: 2012Q3

REPORT INFORMATION
  Report Type: 
  Country: None (occurrence: None)
  Receive Date: 20120726
  Receipt Date: 20120723
  Transmission Date: 20120928
  Serious: Yes (Hospitalization)
  Sender: FDA-Public Use
  Company Number: BR-ROCHE-1016783

PATIENT
  Sex: Female
  Weight: 76 kg

DRUGS (8)
  1. MABTHERA [Suspect]
     Dosage: DOSE, FORM AND FREQUENCY: NOT REPORTED
     Dates: start: 20110601
  2. MABTHERA [Suspect]
     Dates: start: 20100701, end: 20110615
  3. CLONAZEPAM [Concomitant]
  4. ATACAND [Concomitant]
  5. MABTHERA [Suspect]
     Indication: RHEUMATOID ARTHRITIS
     Dosage: DOSE, FORM AND FREQUENCY: NOT REPORTED
     Route: 042
     Dates: start: 20090701, end: 20120715
  6. METOPROLOL SUCCINATE [Concomitant]
  7. METHOTREXATE [Concomitant]
  8. METFORMIN HCL [Concomitant]
     Dosage: DOSE: 850/50 MG

REACTIONS (5)
  - MUSCULOSKELETAL DISORDER [None]
  - LABYRINTHITIS [None]
  - GALLBLADDER DISORDER [None]
  - SPINAL DISORDER [None]
  - ARTHRALGIA [None]
